FAERS Safety Report 14836102 (Version 1)
Quarter: 2018Q2

REPORT INFORMATION
  Report Type: Spontaneous
  Country: US (occurrence: US)
  Receive Date: 20180502
  Receipt Date: 20180502
  Transmission Date: 20180711
  Serious: No
  Sender: FDA-Public Use
  Company Number: US-PFIZER INC-2018174543

PATIENT
  Age: 56 Year
  Sex: Female

DRUGS (12)
  1. METHOTREXATE SODIUM. [Suspect]
     Active Substance: METHOTREXATE SODIUM
     Indication: RHEUMATOID ARTHRITIS
     Dosage: UNK
  2. HUMIRA [Suspect]
     Active Substance: ADALIMUMAB
     Indication: RHEUMATOID ARTHRITIS
     Dosage: UNK
  3. HUMIRA [Suspect]
     Active Substance: ADALIMUMAB
     Indication: MUSCULOSKELETAL STIFFNESS
  4. REMICADE [Suspect]
     Active Substance: INFLIXIMAB
     Indication: RHEUMATOID ARTHRITIS
     Dosage: UNK
  5. REMICADE [Suspect]
     Active Substance: INFLIXIMAB
     Indication: PAIN
  6. METHOTREXATE SODIUM. [Suspect]
     Active Substance: METHOTREXATE SODIUM
     Indication: MUSCULOSKELETAL STIFFNESS
  7. PREDNISONE. [Suspect]
     Active Substance: PREDNISONE
     Indication: MUSCULOSKELETAL STIFFNESS
  8. HUMIRA [Suspect]
     Active Substance: ADALIMUMAB
     Indication: PAIN
  9. PREDNISONE. [Suspect]
     Active Substance: PREDNISONE
     Indication: PAIN
  10. REMICADE [Suspect]
     Active Substance: INFLIXIMAB
     Indication: MUSCULOSKELETAL STIFFNESS
  11. METHOTREXATE SODIUM. [Suspect]
     Active Substance: METHOTREXATE SODIUM
     Indication: PAIN
  12. PREDNISONE. [Suspect]
     Active Substance: PREDNISONE
     Indication: RHEUMATOID ARTHRITIS
     Dosage: UNK

REACTIONS (1)
  - Drug ineffective [Unknown]
